FAERS Safety Report 17157340 (Version 1)
Quarter: 2019Q4

REPORT INFORMATION
  Report Type: Spontaneous
  Country: GB (occurrence: GB)
  Receive Date: 20191216
  Receipt Date: 20191216
  Transmission Date: 20200122
  Serious: Yes (Other)
  Sender: FDA-Public Use
  Company Number: GB-DRREDDYS-GER/UKI/19/0117118

PATIENT
  Age: 40 Year
  Sex: Female
  Weight: 82.55 kg

DRUGS (1)
  1. FLUOXETINE [Suspect]
     Active Substance: FLUOXETINE HYDROCHLORIDE
     Indication: DEPRESSED MOOD
     Route: 048
     Dates: start: 20190916, end: 20191028

REACTIONS (1)
  - Bruxism [Recovering/Resolving]

NARRATIVE: CASE EVENT DATE: 20190922
